FAERS Safety Report 20384140 (Version 1)
Quarter: 2022Q1

REPORT INFORMATION
  Report Type: Spontaneous
  Country: IN (occurrence: IN)
  Receive Date: 20220127
  Receipt Date: 20220127
  Transmission Date: 20220423
  Serious: Yes (Death)
  Sender: FDA-Public Use
  Company Number: IN-PFIZER INC-2020334265

PATIENT
  Age: 64 Year
  Sex: Female

DRUGS (11)
  1. SUTENT [Suspect]
     Active Substance: SUNITINIB MALATE
     Indication: Metastatic renal cell carcinoma
     Dosage: 50 MG, CYCLIC (ONCE A DAY 2 WEEKS ON AND 1 WEEK OFF)
     Route: 048
     Dates: start: 20200820
  2. SUTENT [Suspect]
     Active Substance: SUNITINIB MALATE
     Dosage: 12.5 MG
     Dates: start: 2020
  3. BECOSULES [ASCORBIC ACID;VITAMIN B NOS] [Concomitant]
     Dosage: UNK, DAILY
  4. HEXIDINE MOUTHWASH [Concomitant]
     Dosage: UNK, 3X/DAY
  5. ANOVATE [BECLOMETASONE DIPROPIONATE;LIDOCAINE HYDROCHLORIDE;PHENYLEPHR [Concomitant]
     Dosage: UNK (LOCALLY)
  6. ZOLEDRONIC ACID [Concomitant]
     Active Substance: ZOLEDRONIC ACID
     Dosage: 4 MG
  7. POTKLOR [Concomitant]
     Dosage: 2 X 2 GLASSES OF WATER
  8. DYTAN [Concomitant]
     Dosage: UNK, 1X/DAY
  9. MEGESTROL ACETATE [Concomitant]
     Active Substance: MEGESTROL ACETATE
     Dosage: 160 (UNKNOWN UNIT), OD (ONCE A DAY)
  10. OMNACORTIL [PREDNISOLONE] [Concomitant]
     Dosage: 5 MG, BD (TWICE A DAY)
  11. LEVOTHYROXINE [Concomitant]
     Active Substance: LEVOTHYROXINE
     Dosage: 75 MG
     Route: 048

REACTIONS (10)
  - Death [Fatal]
  - Neoplasm progression [Unknown]
  - Mouth ulceration [Unknown]
  - Chest pain [Unknown]
  - Vulvovaginal rash [Unknown]
  - Anal rash [Unknown]
  - Rash [Unknown]
  - Asthenia [Unknown]
  - Skin swelling [Unknown]
  - Off label use [Unknown]

NARRATIVE: CASE EVENT DATE: 20200101
